FAERS Safety Report 22147981 (Version 1)
Quarter: 2023Q1

REPORT INFORMATION
  Report Type: Spontaneous
  Country: US (occurrence: None)
  Receive Date: 20230328
  Receipt Date: 20230328
  Transmission Date: 20230418
  Serious: No
  Sender: FDA-Public Use
  Company Number: 2023A069158

PATIENT
  Sex: Male
  Weight: 70.3 kg

DRUGS (2)
  1. FARXIGA [Suspect]
     Active Substance: DAPAGLIFLOZIN PROPANEDIOL
     Indication: Type 2 diabetes mellitus
     Route: 048
     Dates: end: 202211
  2. FARXIGA [Suspect]
     Active Substance: DAPAGLIFLOZIN PROPANEDIOL
     Indication: Type 2 diabetes mellitus
     Route: 048
     Dates: start: 202301

REACTIONS (9)
  - Blood glucose increased [Unknown]
  - Haemorrhage [Unknown]
  - Skin lesion [Unknown]
  - Pruritus [Unknown]
  - Drug eruption [Unknown]
  - Scratch [Unknown]
  - Rash [Unknown]
  - Inability to afford medication [Unknown]
  - Therapeutic product effect decreased [Unknown]
